FAERS Safety Report 17245785 (Version 1)
Quarter: 2020Q1

REPORT INFORMATION
  Report Type: Spontaneous
  Country: GB (occurrence: GB)
  Receive Date: 20200108
  Receipt Date: 20200108
  Transmission Date: 20200409
  Serious: Yes (Other)
  Sender: FDA-Public Use
  Company Number: GB-TEVA-2020-GB-1164191

PATIENT
  Age: 68 Year
  Sex: Male
  Weight: 76 kg

DRUGS (9)
  1. RANITIDINE. [Concomitant]
     Active Substance: RANITIDINE
     Dosage: 2 DOSAGE FORMS PER DAY
     Dates: start: 20171128
  2. MAXIDEX [Concomitant]
     Active Substance: DEXAMETHASONE
     Dosage: 4 GTT PER DAY
     Dates: start: 20190916, end: 20190920
  3. AMLODIPINE [Concomitant]
     Active Substance: AMLODIPINE BESYLATE
     Dosage: 1 DOSAGE FORM PER DAY
     Dates: start: 20171010
  4. FINASTERIDE. [Concomitant]
     Active Substance: FINASTERIDE
     Dosage: 1 DOSAGE FORM PER DAY
     Dates: start: 20171010
  5. CLINITAS EYE DROPS [Concomitant]
     Dosage: 3 GTT PER DAY
     Route: 047
     Dates: start: 20171010
  6. TAMSULOSIN HYDROCHLORIDE. [Concomitant]
     Active Substance: TAMSULOSIN HYDROCHLORIDE
     Dosage: 1 DOSAGE FORM PER DAY
     Dates: start: 20190123
  7. ATORVASTATIN [Concomitant]
     Active Substance: ATORVASTATIN
     Dosage: 1 DOSAGE FORM PER DAY
     Dates: start: 20171010
  8. LANSOPRAZOLE. [Suspect]
     Active Substance: LANSOPRAZOLE
     Dosage: 30 MG
     Dates: start: 20191209
  9. DARIFENACIN. [Concomitant]
     Active Substance: DARIFENACIN
     Dosage: 1 DOSAGE FORM PER DAY
     Dates: start: 20190529

REACTIONS (1)
  - Skin exfoliation [Recovered/Resolved]

NARRATIVE: CASE EVENT DATE: 20191209
